FAERS Safety Report 18192152 (Version 2)
Quarter: 2020Q3

REPORT INFORMATION
  Report Type: Spontaneous
  Country: US (occurrence: US)
  Receive Date: 20200825
  Receipt Date: 20200908
  Transmission Date: 20201103
  Serious: No
  Sender: FDA-Public Use
  Company Number: US-PFIZER INC-2020326820

PATIENT
  Age: 55 Year
  Sex: Female
  Weight: 90.26 kg

DRUGS (1)
  1. XELJANZ [Suspect]
     Active Substance: TOFACITINIB CITRATE
     Indication: PSORIATIC ARTHROPATHY
     Dosage: 10 MG, DAILY (TWO TABLETS DAILY BY MOUTH)
     Route: 048
     Dates: start: 20181231

REACTIONS (1)
  - Drug ineffective [Unknown]
